FAERS Safety Report 19804275 (Version 1)
Quarter: 2021Q3

REPORT INFORMATION
  Report Type: Spontaneous
  Country: US (occurrence: US)
  Receive Date: 20210908
  Receipt Date: 20210908
  Transmission Date: 20211014
  Serious: No
  Sender: FDA-Public Use
  Company Number: US-FARMAPROD-202104-0633

PATIENT
  Sex: Male

DRUGS (11)
  1. OXERVATE [Suspect]
     Active Substance: CENEGERMIN-BKBJ
     Indication: NEUROTROPHIC KERATOPATHY
     Route: 047
     Dates: start: 20210310
  2. IRBESARTAN. [Concomitant]
     Active Substance: IRBESARTAN
  3. SYSTANE (HYPROMELLOSE 2910 (4000 MPA.S)) [Concomitant]
     Active Substance: HYPROMELLOSE 2910 (4000 MPA.S)
     Dosage: 0.3%?0.4%
  4. METOPROLOL SUCCINATE. [Concomitant]
     Active Substance: METOPROLOL SUCCINATE
  5. LANTUS [Concomitant]
     Active Substance: INSULIN GLARGINE
     Dosage: 100/ ML VIAL
  6. POTASSIUM CHLORIDE. [Concomitant]
     Active Substance: POTASSIUM CHLORIDE
  7. XARELTO [Concomitant]
     Active Substance: RIVAROXABAN
  8. CULTURELLE 10B CELL [Concomitant]
  9. IRON [Concomitant]
     Active Substance: IRON
     Dosage: 159 (45) MG EXTENDED RELEASE TABLET
  10. VITAMIN C [Concomitant]
     Active Substance: ASCORBIC ACID
  11. FUROSEMIDE. [Concomitant]
     Active Substance: FUROSEMIDE
     Dosage: VIAL

REACTIONS (3)
  - Eyelid pain [Unknown]
  - Swelling of eyelid [Unknown]
  - Eye discharge [Unknown]
